FAERS Safety Report 5404996-0 (Version None)
Quarter: 2007Q3

REPORT INFORMATION
  Report Type: 
  Country: None (occurrence: None)
  Receive Date: 20070801
  Receipt Date: 20070719
  Transmission Date: 20080115
  Serious: Yes (Other)
  Sender: FDA-Public Use
  Company Number: 2007US000160

PATIENT
  Age: 70 Year
  Sex: Female

DRUGS (1)
  1. PROTOPIC [Suspect]
     Indication: RASH
     Dosage: TOPICAL
     Route: 061

REACTIONS (2)
  - DIABETES MELLITUS [None]
  - PANCREATIC CARCINOMA [None]
